FAERS Safety Report 16596070 (Version 2)
Quarter: 2019Q4

REPORT INFORMATION
  Report Type: Spontaneous
  Country: US (occurrence: US)
  Receive Date: 20190719
  Receipt Date: 20191217
  Transmission Date: 20200122
  Serious: Yes (Other)
  Sender: FDA-Public Use
  Company Number: US-ASTRAZENECA-2019SF00611

PATIENT
  Age: 45 Year
  Sex: Female
  Weight: 84 kg

DRUGS (17)
  1. OXTELLAR XR [Concomitant]
     Active Substance: OXCARBAZEPINE
     Indication: SEIZURE
     Route: 048
     Dates: start: 2016
  2. VITAMIN D [Concomitant]
     Active Substance: VITAMIN D NOS
     Indication: VITAMIN D DEFICIENCY
     Dates: start: 2017
  3. LEVOTHYROXINE. [Concomitant]
     Active Substance: LEVOTHYROXINE
     Indication: THYROID DISORDER
     Dates: start: 2014
  4. FAMOTIDINE. [Concomitant]
     Active Substance: FAMOTIDINE
     Dates: start: 201601, end: 201604
  5. NEXIUM [Suspect]
     Active Substance: ESOMEPRAZOLE MAGNESIUM
     Indication: GASTROOESOPHAGEAL REFLUX DISEASE
     Route: 048
     Dates: start: 201402, end: 201405
  6. OMEGA 3 [Concomitant]
     Active Substance: OMEGA-3 FATTY ACIDS
     Indication: ROUTINE HEALTH MAINTENANCE
     Dates: start: 2016
  7. FLAXSEED [Concomitant]
     Active Substance: FLAX SEED
     Indication: ROUTINE HEALTH MAINTENANCE
     Dates: start: 2017
  8. LAMOTRIGINE. [Concomitant]
     Active Substance: LAMOTRIGINE
     Route: 048
     Dates: start: 20160909
  9. CINNAMON. [Concomitant]
     Active Substance: CINNAMON
     Indication: ROUTINE HEALTH MAINTENANCE
     Dates: start: 2017
  10. NEXIUM [Suspect]
     Active Substance: ESOMEPRAZOLE MAGNESIUM
     Indication: GASTROOESOPHAGEAL REFLUX DISEASE
     Route: 048
     Dates: start: 201408, end: 201411
  11. BRIVIACT [Concomitant]
     Active Substance: BRIVARACETAM
     Indication: SEIZURE
     Dates: start: 2019
  12. TURMERIC [Concomitant]
     Active Substance: HERBALS\TURMERIC
     Indication: ROUTINE HEALTH MAINTENANCE
     Dates: start: 201904
  13. NEXIUM [Suspect]
     Active Substance: ESOMEPRAZOLE MAGNESIUM
     Indication: GASTROOESOPHAGEAL REFLUX DISEASE
     Route: 048
     Dates: start: 20140814
  14. OXTELLAR XR [Concomitant]
     Active Substance: OXCARBAZEPINE
     Indication: SEIZURE
     Dates: start: 2014, end: 2016
  15. LEVETIRACETAM. [Concomitant]
     Active Substance: LEVETIRACETAM
     Indication: SEIZURE
     Route: 048
     Dates: start: 2014, end: 2018
  16. NEXIUM [Suspect]
     Active Substance: ESOMEPRAZOLE MAGNESIUM
     Indication: GASTROOESOPHAGEAL REFLUX DISEASE
     Route: 048
     Dates: start: 2014
  17. NEXIUM [Suspect]
     Active Substance: ESOMEPRAZOLE MAGNESIUM
     Indication: GASTROOESOPHAGEAL REFLUX DISEASE
     Route: 048
     Dates: start: 20140218

REACTIONS (3)
  - Tubulointerstitial nephritis [Unknown]
  - Chronic kidney disease [Not Recovered/Not Resolved]
  - Acute kidney injury [Not Recovered/Not Resolved]

NARRATIVE: CASE EVENT DATE: 2015
